FAERS Safety Report 8559272-4 (Version None)
Quarter: 2012Q3

REPORT INFORMATION
  Report Type: 
  Country: None (occurrence: None)
  Receive Date: 20120802
  Receipt Date: 20120726
  Transmission Date: 20120928
  Serious: Yes (Hospitalization, Other)
  Sender: FDA-Public Use
  Company Number: PHFR2012GB004235

PATIENT
  Sex: Male

DRUGS (10)
  1. ZUCLOPENTHIXOL DECANOATE [Concomitant]
     Dosage: 500 MG, (WEEKLY)
     Route: 030
  2. OLANZAPINE [Concomitant]
  3. CHLORPROMAZINE HCL [Concomitant]
  4. CARBAMAZEPINE [Concomitant]
  5. DIAZEPAM [Concomitant]
     Dosage: 5 MG, QDS PRN
  6. LACTULOSE [Concomitant]
     Dosage: 15 ML, BID
  7. CLOZAPINE [Suspect]
     Indication: SCHIZOPHRENIA
     Dosage: 400 MG
     Route: 048
     Dates: start: 19900101, end: 19910201
  8. QUETIAPINE [Concomitant]
     Dosage: 400 MG, BID
  9. CLONAZEPAM [Concomitant]
     Dosage: 1 MG, TDS
  10. VALPROATE SODIUM [Concomitant]
     Dosage: 2000 MG, (NOCTE)

REACTIONS (13)
  - PSYCHOTIC DISORDER [None]
  - NEUTROPENIA [None]
  - SCHIZOPHRENIA [None]
  - NEUTROPHIL COUNT DECREASED [None]
  - STEREOTYPY [None]
  - THINKING ABNORMAL [None]
  - INSOMNIA [None]
  - APATHY [None]
  - ABNORMAL BEHAVIOUR [None]
  - AGGRESSION [None]
  - DELUSION [None]
  - SEXUALLY INAPPROPRIATE BEHAVIOUR [None]
  - DYSARTHRIA [None]
